FAERS Safety Report 10003448 (Version 2)
Quarter: 2014Q1

REPORT INFORMATION
  Report Type: Spontaneous
  Country: US (occurrence: US)
  Receive Date: 20140312
  Receipt Date: 20140312
  Transmission Date: 20141002
  Serious: No
  Sender: FDA-Public Use
  Company Number: US-GILEAD-2012-0063352

PATIENT
  Sex: Female

DRUGS (3)
  1. LETAIRIS [Suspect]
     Indication: PULMONARY ARTERIAL HYPERTENSION
     Dosage: 5 MG, UNK
     Route: 048
     Dates: start: 20120914, end: 201210
  2. REMODULIN [Concomitant]
  3. ADCIRCA [Concomitant]
     Dosage: 40 MG, QD
     Dates: start: 20120731

REACTIONS (2)
  - Unevaluable event [Unknown]
  - Malaise [Unknown]
